FAERS Safety Report 19878795 (Version 1)
Quarter: 2021Q3

REPORT INFORMATION
  Report Type: Report from Study
  Country: None (occurrence: US)
  Receive Date: 20210924
  Receipt Date: 20210924
  Transmission Date: 20211014
  Serious: Yes (Death, Other)
  Sender: FDA-Public Use
  Company Number: US-ABBVIE-21K-163-3842538-00

PATIENT
  Sex: Male

DRUGS (1)
  1. VENCLEXTA [Suspect]
     Active Substance: VENETOCLAX
     Indication: MYELODYSPLASTIC SYNDROME
     Dosage: TAKE 4 TABLET(S) BY MOUTH WITH WATER AND MEAL AT THE SAME TIME EVERY DAY
     Route: 048

REACTIONS (4)
  - Death [Fatal]
  - Myelodysplastic syndrome [Unknown]
  - Drug ineffective [Unknown]
  - Off label use [Unknown]
